FAERS Safety Report 15802497 (Version 1)
Quarter: 2019Q1

REPORT INFORMATION
  Report Type: Spontaneous
  Country: US (occurrence: US)
  Receive Date: 20190109
  Receipt Date: 20190109
  Transmission Date: 20190417
  Serious: No
  Sender: FDA-Public Use
  Company Number: US-TEVA-2018-US-989859

PATIENT
  Sex: Female

DRUGS (1)
  1. IMATINIB MESYLATE TEVA [Suspect]
     Active Substance: IMATINIB MESYLATE

REACTIONS (6)
  - Scar [Unknown]
  - Dry skin [Unknown]
  - Abdominal discomfort [Unknown]
  - Product substitution issue [Unknown]
  - Scratch [Unknown]
  - Skin haemorrhage [Unknown]
